FAERS Safety Report 6556469-X (Version None)
Quarter: 2010Q1

REPORT INFORMATION
  Report Type: 
  Country: None (occurrence: None)
  Receive Date: 20100128
  Receipt Date: 20100119
  Transmission Date: 20100710
  Serious: Yes (Hospitalization)
  Sender: FDA-Public Use
  Company Number: AU-MERCK-1001USA01700

PATIENT
  Age: 88 Year
  Sex: Female
  Weight: 78 kg

DRUGS (1)
  1. FOSAMAX [Suspect]
     Indication: OSTEOPOROSIS
     Route: 048
     Dates: end: 20090315

REACTIONS (4)
  - DYSPHAGIA [None]
  - DYSPNOEA [None]
  - OSTEONECROSIS [None]
  - PYREXIA [None]
